FAERS Safety Report 7740303-6 (Version None)
Quarter: 2011Q3

REPORT INFORMATION
  Report Type: 
  Country: None (occurrence: None)
  Receive Date: 20110909
  Receipt Date: 20110901
  Transmission Date: 20111222
  Serious: Yes (Hospitalization)
  Sender: FDA-Public Use
  Company Number: JP-ROCHE-801017

PATIENT
  Age: 89 Year
  Sex: Female

DRUGS (1)
  1. MIRCERA [Suspect]
     Indication: NEPHROGENIC ANAEMIA
     Dosage: DRUG: MIRCERA S INJECTION(METHOXY POLYETHYLENE GLYCOL-EPOETIN BETA)
     Route: 058
     Dates: start: 20110729, end: 20110826

REACTIONS (1)
  - HAEMOGLOBIN DECREASED [None]
